FAERS Safety Report 6304895-6 (Version None)
Quarter: 2009Q3

REPORT INFORMATION
  Report Type: 
  Country: None (occurrence: None)
  Receive Date: 20090811
  Receipt Date: 20090731
  Transmission Date: 20100115
  Serious: Yes (Hospitalization)
  Sender: FDA-Public Use
  Company Number: FR-ELI_LILLY_AND_COMPANY-FR200907007114

PATIENT
  Age: 60 Year
  Sex: Female

DRUGS (5)
  1. PROZAC [Suspect]
  2. PARKINANE [Concomitant]
     Dates: start: 20081122, end: 20081123
  3. SURMONTIL [Concomitant]
     Dosage: 1 D/F, DAILY (1/D)
     Route: 048
     Dates: start: 19970101, end: 20081123
  4. ZOPICLONE [Concomitant]
     Dosage: 1 D/F, DAILY (1/D)
     Route: 048
     Dates: start: 20080101, end: 20081123
  5. LEXOMIL [Concomitant]
     Dosage: 0.25 D/F, 3/D
     Route: 048
     Dates: start: 19970101, end: 20081123

REACTIONS (3)
  - CLUMSINESS [None]
  - CONFUSIONAL STATE [None]
  - FALL [None]
